FAERS Safety Report 7268702-X (Version None)
Quarter: 2011Q1

REPORT INFORMATION
  Report Type: 
  Country: None (occurrence: None)
  Receive Date: 20110201
  Receipt Date: 20110124
  Transmission Date: 20110831
  Serious: Yes (Hospitalization, Other)
  Sender: FDA-Public Use
  Company Number: US-AMGEN-USASP2011004171

PATIENT
  Age: 59 Year
  Sex: Female

DRUGS (1)
  1. ENBREL [Suspect]
     Indication: PSORIASIS
     Dosage: 50 MG, QWK
     Dates: start: 20081130

REACTIONS (7)
  - HYPOAESTHESIA FACIAL [None]
  - FUNGAL INFECTION [None]
  - PAIN IN EXTREMITY [None]
  - BLISTER [None]
  - BREAST PAIN [None]
  - DRUG INEFFECTIVE [None]
  - EAR PAIN [None]
